FAERS Safety Report 9868715 (Version 1)
Quarter: 2014Q1

REPORT INFORMATION
  Report Type: Spontaneous
  Country: US (occurrence: US)
  Receive Date: 20140204
  Receipt Date: 20140204
  Transmission Date: 20141002
  Serious: No
  Sender: FDA-Public Use
  Company Number: US-ENDO PHARMACEUTICALS INC.-METH20130009

PATIENT
  Sex: Male

DRUGS (2)
  1. METHYLPREDNISOLONE [Suspect]
     Indication: BACK PAIN
     Dosage: 4MG
     Route: 048
  2. PREDNISONE TABLETS [Suspect]
     Indication: ETHMOID SINUS SURGERY
     Dosage: UNK
     Route: 048

REACTIONS (2)
  - Bladder pain [Recovered/Resolved]
  - Dysuria [Recovered/Resolved]
